FAERS Safety Report 17179264 (Version 1)
Quarter: 2019Q4

REPORT INFORMATION
  Report Type: Spontaneous
  Country: IT (occurrence: IT)
  Receive Date: 20191219
  Receipt Date: 20191219
  Transmission Date: 20200122
  Serious: Yes (Other)
  Sender: FDA-Public Use
  Company Number: IT-HETERO-HET2019IT01745

PATIENT
  Age: 73 Year
  Sex: Male

DRUGS (2)
  1. ESCITALOPRAM [Suspect]
     Active Substance: ESCITALOPRAM OXALATE
     Indication: PERSISTENT DEPRESSIVE DISORDER
     Dosage: 20 MG, QD
     Route: 048
     Dates: start: 20130101, end: 20190801
  2. MIRTAZAPINE. [Interacting]
     Active Substance: MIRTAZAPINE
     Indication: DEPRESSION
     Dosage: 30 MG, QD
     Route: 048
     Dates: start: 20130101

REACTIONS (2)
  - Drug interaction [Recovering/Resolving]
  - Extrapyramidal disorder [Recovering/Resolving]

NARRATIVE: CASE EVENT DATE: 20180801
